FAERS Safety Report 4953834-9 (Version None)
Quarter: 2006Q1

REPORT INFORMATION
  Report Type: 
  Country: None (occurrence: None)
  Receive Date: 20060327
  Receipt Date: 20060220
  Transmission Date: 20060701
  Serious: Yes (Other)
  Sender: FDA-Public Use
  Company Number: PHEH2006US02377

PATIENT
  Age: 71 Year
  Sex: Female

DRUGS (4)
  1. ZOMETA [Suspect]
     Indication: METASTASES TO BONE
     Dosage: 4 MG, Q4 WEEKS
     Dates: start: 20030601, end: 20060101
  2. TAXOTERE [Concomitant]
     Indication: LUNG NEOPLASM MALIGNANT
     Dosage: 130 MG, Q21DAYS
     Dates: start: 20030630, end: 20030909
  3. TAXOTERE [Concomitant]
     Dosage: 60 MG, Q WEEK X 2, THEN 1 WEEK OFF
     Dates: start: 20031008
  4. CHEMOTHERAPEUTICS,OTHER [Concomitant]

REACTIONS (14)
  - BONE DISORDER [None]
  - DENTAL CARE [None]
  - ERYTHEMA [None]
  - GINGIVAL DISORDER [None]
  - JAW DISORDER [None]
  - LOCAL SWELLING [None]
  - ORAL PAIN [None]
  - OSTEOMYELITIS [None]
  - OSTEONECROSIS [None]
  - PAIN [None]
  - PAIN IN JAW [None]
  - PURULENT DISCHARGE [None]
  - PYREXIA [None]
  - TOOTH EXTRACTION [None]
